FAERS Safety Report 5803310-6 (Version None)
Quarter: 2008Q3

REPORT INFORMATION
  Report Type: 
  Country: None (occurrence: None)
  Receive Date: 20080708
  Receipt Date: 20080704
  Transmission Date: 20090109
  Serious: Yes (Other)
  Sender: FDA-Public Use
  Company Number: B0527800A

PATIENT
  Age: 34 Year
  Sex: Female

DRUGS (2)
  1. FLUTIDE [Suspect]
     Route: 055
  2. SULTANOL [Suspect]
     Route: 055

REACTIONS (1)
  - LOSS OF CONSCIOUSNESS [None]
